FAERS Safety Report 19882921 (Version 2)
Quarter: 2022Q4

REPORT INFORMATION
  Report Type: Spontaneous
  Country: US (occurrence: US)
  Receive Date: 20210925
  Receipt Date: 20221003
  Transmission Date: 20230112
  Serious: No
  Sender: FDA-Public Use
  Company Number: US-SA-SAC20210923000722

PATIENT
  Age: 59 Year
  Sex: Female

DRUGS (1)
  1. DUPIXENT [Suspect]
     Active Substance: DUPILUMAB
     Indication: Dermatitis atopic
     Dosage: 300 MG, QOW
     Route: 058
     Dates: start: 20201001, end: 20220808

REACTIONS (5)
  - Eye infection viral [Unknown]
  - Eye pain [Unknown]
  - Eye discharge [Unknown]
  - Photophobia [Unknown]
  - Ocular hyperaemia [Unknown]
